FAERS Safety Report 14681955 (Version 2)
Quarter: 2018Q2

REPORT INFORMATION
  Report Type: Spontaneous
  Country: GR (occurrence: GR)
  Receive Date: 20180326
  Receipt Date: 20180418
  Transmission Date: 20180711
  Serious: Yes (Death, Life-Threatening, Hospitalization, Other)
  Sender: FDA-Public Use
  Company Number: GR-BAUSCH-BL-2018-006653

PATIENT
  Age: 48 Year
  Sex: Male
  Weight: 59 kg

DRUGS (11)
  1. CYTOXAN [Suspect]
     Active Substance: CYCLOPHOSPHAMIDE
     Indication: PLASMA CELL MYELOMA RECURRENT
     Dosage: DOSAGE FORM: UNSPECIFIED
     Route: 042
     Dates: start: 20160628, end: 20170120
  2. VELCADE [Suspect]
     Active Substance: BORTEZOMIB
     Dosage: DOSAGE FORM: LYOPHILIZED POWDER, 1 CYCLICAL
     Route: 058
     Dates: start: 20170404, end: 20170502
  3. REVLIMID [Suspect]
     Active Substance: LENALIDOMIDE
     Indication: PLASMA CELL MYELOMA RECURRENT
     Dosage: DOSAGE FORM: UNSPECIFIED
     Route: 048
     Dates: start: 20170425
  4. VELCADE [Suspect]
     Active Substance: BORTEZOMIB
     Dosage: DOSAGE FORM: LYOPHILIZED POWDER, 1 CYCLICAL
     Route: 058
     Dates: start: 20170116, end: 20170120
  5. PLATINOL [Suspect]
     Active Substance: CISPLATIN
     Indication: PLASMA CELL MYELOMA RECURRENT
     Dosage: DOSAGE FORM: UNSPECIFIED 1 CYCLICAL
     Route: 042
     Dates: start: 20160628, end: 20170120
  6. DEXAMETHASONE. [Suspect]
     Active Substance: DEXAMETHASONE
     Indication: PLASMA CELL MYELOMA RECURRENT
     Dosage: DOSAGE FORM: UNSPECIFIED 1 CYCLICAL
     Route: 048
     Dates: start: 20160628, end: 20170120
  7. DEXAMETHASONE. [Suspect]
     Active Substance: DEXAMETHASONE
     Dosage: DOSAGE FORM: UNSPECIFIED 1 CYCLICAL
     Route: 048
     Dates: start: 20170404, end: 20170502
  8. ADRIAMYCIN [Suspect]
     Active Substance: DOXORUBICIN HYDROCHLORIDE
     Indication: PLASMA CELL MYELOMA RECURRENT
     Dosage: CYCLE
     Route: 042
     Dates: start: 20160628, end: 20170120
  9. IMNOVID [Suspect]
     Active Substance: POMALIDOMIDE
     Indication: PLASMA CELL MYELOMA RECURRENT
     Dosage: DOSAGE FORM: UNSPECIFIED, 1 CYCLICAL
     Route: 048
     Dates: start: 20170404, end: 20170414
  10. ETOPOSIDE. [Suspect]
     Active Substance: ETOPOSIDE
     Indication: PLASMA CELL MYELOMA RECURRENT
     Dosage: DOSAGE FORM: UNSPECIFIED, 1 CYCLICAL
     Route: 065
     Dates: start: 20160628, end: 20170120
  11. VELCADE [Suspect]
     Active Substance: BORTEZOMIB
     Indication: PLASMA CELL MYELOMA RECURRENT
     Dosage: DOSAGE FORM: LYOPHILIZED POWDER, 1 CYCLICAL
     Route: 058
     Dates: start: 20160628, end: 20161201

REACTIONS (7)
  - Multiple organ dysfunction syndrome [Fatal]
  - Respiratory tract infection [Fatal]
  - Plasma cell myeloma [Fatal]
  - Plasma cell leukaemia [Fatal]
  - Pyrexia [Fatal]
  - Febrile neutropenia [Fatal]
  - Product use in unapproved indication [Unknown]

NARRATIVE: CASE EVENT DATE: 20160628
